FAERS Safety Report 4771713-7 (Version None)
Quarter: 2005Q3

REPORT INFORMATION
  Report Type: 
  Country: None (occurrence: None)
  Receive Date: 20050916
  Receipt Date: 20050819
  Transmission Date: 20060218
  Serious: Yes (Hospitalization)
  Sender: FDA-Public Use
  Company Number: 200517374GDDC

PATIENT
  Age: 54 Year
  Sex: Female

DRUGS (7)
  1. FEXOFENADINE HCL [Suspect]
     Indication: HYPERSENSITIVITY
     Route: 048
     Dates: start: 20050811, end: 20050818
  2. COMBAR [Concomitant]
     Indication: DEPRESSION
  3. SPIRIX [Concomitant]
  4. FUROSEMIDE [Concomitant]
  5. ZANTAC [Concomitant]
     Indication: ULCER
  6. VENTOLIN [Concomitant]
     Dosage: DOSE: 4-6 TIMES
     Route: 055
  7. STILNOCT [Concomitant]

REACTIONS (5)
  - ANAPHYLACTIC SHOCK [None]
  - DISORIENTATION [None]
  - PARAESTHESIA [None]
  - PRURITUS [None]
  - THROAT TIGHTNESS [None]
